FAERS Safety Report 16348007 (Version 1)
Quarter: 2019Q2

REPORT INFORMATION
  Report Type: Spontaneous
  Country: US (occurrence: US)
  Receive Date: 20190417
  Receipt Date: 20190417
  Transmission Date: 20190711
  Serious: No
  Sender: FDA-Public Use
  Company Number: None

PATIENT
  Age: 76 Year
  Sex: Female
  Weight: 85.28 kg

DRUGS (1)
  1. ENBREL [Suspect]
     Active Substance: ETANERCEPT
     Indication: COLON CANCER
     Dosage: AS DIRECTED
     Route: 058
     Dates: start: 201708

REACTIONS (3)
  - Headache [None]
  - Dizziness [None]
  - Vision blurred [None]
